FAERS Safety Report 8763995 (Version 1)
Quarter: 2012Q4

REPORT INFORMATION
  Report Type: 
  Country: TN (occurrence: TN)
  Receive Date: 20120831
  Receipt Date: 20120831
  Transmission Date: 20130627
  Serious: Yes (Death)
  Sender: FDA-Public Use
  Company Number: TN-SANOFI-AVENTIS-2012SA060378

PATIENT
  Age: 68 Year
  Sex: Male

DRUGS (7)
  1. PLAVIX [Suspect]
     Indication: ACUTE CORONARY SYNDROME
     Route: 048
     Dates: start: 20111217, end: 20120720
  2. ASPIRINE [Concomitant]
     Indication: DRUG USE FOR UNKNOWN INDICATION
     Route: 048
     Dates: end: 20120720
  3. TILDIEM [Concomitant]
     Indication: HYPERTENSION
     Route: 048
     Dates: end: 20120720
  4. RISORDAN [Concomitant]
     Indication: ACUTE CORONARY SYNDROME
     Route: 048
     Dates: end: 20120720
  5. KERLONE [Concomitant]
     Indication: HYPERTENSION
     Route: 048
     Dates: end: 20120720
  6. TAHOR [Concomitant]
     Indication: DYSLIPIDEMIA
     Route: 048
     Dates: end: 20120720
  7. MOPRAL [Concomitant]
     Indication: DRUG USE FOR UNKNOWN INDICATION
     Route: 048
     Dates: end: 20120720

REACTIONS (1)
  - Hepatic neoplasm [Fatal]
